FAERS Safety Report 14375701 (Version 1)
Quarter: 2018Q1

REPORT INFORMATION
  Report Type: Spontaneous
  Country: US (occurrence: US)
  Receive Date: 20180111
  Receipt Date: 20180111
  Transmission Date: 20180509
  Serious: Yes (Other)
  Sender: FDA-Public Use
  Company Number: US-PFIZER INC-2016119655

PATIENT
  Age: 85 Year
  Sex: Female
  Weight: 78 kg

DRUGS (11)
  1. TIKOSYN [Suspect]
     Active Substance: DOFETILIDE
     Dosage: 250 UG, UNK
  2. ATENOLOL. [Concomitant]
     Active Substance: ATENOLOL
     Dosage: 25 MG, UNK
  3. WARFARIN SODIUM. [Concomitant]
     Active Substance: WARFARIN SODIUM
     Dosage: UNK
  4. SIMVASTATIN. [Concomitant]
     Active Substance: SIMVASTATIN
     Dosage: UNK
  5. TIKOSYN [Suspect]
     Active Substance: DOFETILIDE
     Indication: ATRIAL FIBRILLATION
     Dosage: 500 UG, 2X/DAY
     Route: 048
  6. ALPROZOLAM [Concomitant]
     Active Substance: ALPRAZOLAM
     Dosage: 0.5 MG, UNK
  7. TOVIAZ [Concomitant]
     Active Substance: FESOTERODINE FUMARATE
     Indication: POLLAKIURIA
     Dosage: 4 MG, 1X/DAY
     Route: 048
  8. TIKOSYN [Suspect]
     Active Substance: DOFETILIDE
     Dosage: 500 MG, UNK
  9. AMARYL [Concomitant]
     Active Substance: GLIMEPIRIDE
     Dosage: 4 MG, UNK
  10. INSULIN [Concomitant]
     Active Substance: INSULIN NOS
     Dosage: UNK
  11. TIKOSYN [Suspect]
     Active Substance: DOFETILIDE
     Dosage: 250 MG, UNK

REACTIONS (2)
  - Heart rate irregular [Unknown]
  - Electrocardiogram QT prolonged [Unknown]
